FAERS Safety Report 11894415 (Version 1)
Quarter: 2016Q1

REPORT INFORMATION
  Report Type: Report from Study
  Country: US (occurrence: US)
  Receive Date: 20160107
  Receipt Date: 20160107
  Transmission Date: 20160526
  Serious: Yes (Death, Other)
  Sender: FDA-Public Use
  Company Number: US-ROCHE-1688585

PATIENT

DRUGS (2)
  1. BEVACIZUMAB [Suspect]
     Active Substance: BEVACIZUMAB
     Indication: MALIGNANT GLIOMA
     Route: 065
  2. ENZASTAURIN [Suspect]
     Active Substance: ENZASTAURIN
     Indication: MALIGNANT GLIOMA
     Dosage: LOADING DOSE.
     Route: 048

REACTIONS (20)
  - Thrombocytopenia [Unknown]
  - Oedema peripheral [Unknown]
  - Pneumonia [Unknown]
  - Aspartate aminotransferase increased [Unknown]
  - Lymphopenia [Unknown]
  - Death [Fatal]
  - Dysgeusia [Unknown]
  - Hypophosphataemia [Unknown]
  - Embolism [Unknown]
  - Neutropenia [Unknown]
  - Hypertension [Unknown]
  - Mucosal inflammation [Unknown]
  - Stomatitis [Unknown]
  - Hypernatraemia [Unknown]
  - Amylase increased [Unknown]
  - Septic shock [Unknown]
  - Alanine aminotransferase increased [Unknown]
  - Thrombosis [Unknown]
  - Abdominal pain [Unknown]
  - Hyperuricaemia [Unknown]
